FAERS Safety Report 16584782 (Version 1)
Quarter: 2019Q3

REPORT INFORMATION
  Report Type: Spontaneous
  Country: US (occurrence: US)
  Receive Date: 20190716
  Receipt Date: 20190716
  Transmission Date: 20191004
  Serious: No
  Sender: FDA-Public Use
  Company Number: None

PATIENT
  Age: 70 Year

DRUGS (16)
  1. DILIAZEM [Concomitant]
  2. METAXALONE. [Concomitant]
     Active Substance: METAXALONE
  3. TYLENOL [Concomitant]
     Active Substance: ACETAMINOPHEN
  4. DEXAMETHASON [Concomitant]
     Active Substance: DEXAMETHASONE
  5. FINASTERIDE. [Concomitant]
     Active Substance: FINASTERIDE
  6. NINLARO [Suspect]
     Active Substance: IXAZOMIB CITRATE
     Indication: PLASMA CELL MYELOMA
     Dosage: ?          OTHER FREQUENCY:DAY 1,8,15;?
     Route: 048
     Dates: start: 20190425
  7. OMEPRAZOLE. [Concomitant]
     Active Substance: OMEPRAZOLE
  8. COSOPT [Concomitant]
     Active Substance: DORZOLAMIDE HYDROCHLORIDE\TIMOLOL MALEATE
  9. LATANOPROST. [Concomitant]
     Active Substance: LATANOPROST
  10. LOSARTAN. [Concomitant]
     Active Substance: LOSARTAN
  11. ASPIRIN. [Concomitant]
     Active Substance: ASPIRIN
  12. ATORVASTATIN [Concomitant]
     Active Substance: ATORVASTATIN
  13. LACTOSE [Concomitant]
     Active Substance: LACTOSE
  14. PROCHLORPER [Concomitant]
  15. SPIRONOLACTONE. [Concomitant]
     Active Substance: SPIRONOLACTONE
  16. TERAZOSIN [Concomitant]
     Active Substance: TERAZOSIN HYDROCHLORIDE

REACTIONS (1)
  - Off label use [None]

NARRATIVE: CASE EVENT DATE: 20190401
